FAERS Safety Report 6877341-1 (Version None)
Quarter: 2010Q3

REPORT INFORMATION
  Report Type: 
  Country: None (occurrence: None)
  Receive Date: 20100727
  Receipt Date: 20090909
  Transmission Date: 20110219
  Serious: No
  Sender: FDA-Public Use
  Company Number: US-ABBOTT-09P-163-0597031-00

PATIENT
  Age: 11 Year
  Sex: Male

DRUGS (1)
  1. SYNTHROID [Suspect]
     Indication: PRODUCT USED FOR UNKNOWN INDICATION
     Dosage: UNKNOWN
     Route: 065

REACTIONS (3)
  - ABNORMAL BEHAVIOUR [None]
  - ANXIETY [None]
  - DRUG HYPERSENSITIVITY [None]
